FAERS Safety Report 9505693 (Version 1)
Quarter: 2013Q1

REPORT INFORMATION
  Report Type: Spontaneous
  Country: US (occurrence: None)
  Receive Date: 20130225
  Receipt Date: 20130225
  Transmission Date: 20140127
  Serious: No
  Sender: FDA-Public Use
  Company Number: 368523

PATIENT
  Age: 59 Year
  Sex: Male
  Weight: 138.8 kg

DRUGS (8)
  1. VICTOZA [Suspect]
     Indication: TYPE 2 DIABETES MELLITUS
     Route: 058
  2. TRICOR (ADENOSINE) [Concomitant]
  3. COREG (CARVEDILOL) [Concomitant]
  4. VERAPAMIL (VERAPAMIL) [Concomitant]
  5. CRESTOR (ROSUVASTATIN) CALCIUM0 [Concomitant]
  6. ASPIRIN (ACETYLSALICYLIC ACID) [Concomitant]
  7. GLIMEPIRIDE (GLIMEPIRIDE) [Concomitant]
  8. ALTACE (RAMIPRIL) [Concomitant]

REACTIONS (4)
  - Lipase increased [None]
  - Amylase increased [None]
  - Abdominal discomfort [None]
  - Tachycardia [None]
